FAERS Safety Report 9991541 (Version 2)
Quarter: 2020Q1

REPORT INFORMATION
  Report Type: Spontaneous
  Country: US (occurrence: US)
  Receive Date: 20140310
  Receipt Date: 20200205
  Transmission Date: 20200409
  Serious: Yes (Death, Hospitalization, Other)
  Sender: FDA-Public Use
  Company Number: US-PFIZER INC-2014066964

PATIENT
  Age: 15 Month
  Sex: Female
  Weight: 6.35 kg

DRUGS (16)
  1. METHYLPREDNISOLONE SODIUM SUCCINATE. [Suspect]
     Active Substance: METHYLPREDNISOLONE SODIUM SUCCINATE
     Indication: RESPIRATORY DISTRESS
     Dosage: 3.5 MG EVERY 12 HOURS FOR 3 D
  2. ALBUTEROL. [Concomitant]
     Active Substance: ALBUTEROL
     Indication: RESPIRATORY DISTRESS
  3. METHYLPREDNISOLONE SODIUM SUCCINATE. [Suspect]
     Active Substance: METHYLPREDNISOLONE SODIUM SUCCINATE
     Dosage: 0.4 MG TWICE A DAY
     Route: 042
  4. AMOXICILLIN CLAVULANATE [Concomitant]
     Active Substance: AMOXICILLIN\CLAVULANIC ACID
     Indication: RESPIRATORY DISTRESS
  5. LANSOPRAZOLE. [Concomitant]
     Active Substance: LANSOPRAZOLE
     Dosage: UNK
  6. ACYCLOVIR. [Concomitant]
     Active Substance: ACYCLOVIR
     Dosage: 130 MG, EVERY 6 HOURS
     Route: 042
  7. METHYLPREDNISOLONE SODIUM SUCCINATE. [Suspect]
     Active Substance: METHYLPREDNISOLONE SODIUM SUCCINATE
     Dosage: 13 MG FOR 1 DOSE
     Route: 042
  8. PNEUMOCOCCAL VACCINE POLYVALENT NOS [Concomitant]
     Active Substance: PNEUMOCOCCAL VACCINE POLYVALENT
  9. ACYCLOVIR. [Concomitant]
     Active Substance: ACYCLOVIR
     Indication: RESPIRATORY DISTRESS
     Dosage: 200 MG/5 ML SUSPENSION
     Route: 048
  10. METHYLPREDNISOLONE SODIUM SUCCINATE. [Suspect]
     Active Substance: METHYLPREDNISOLONE SODIUM SUCCINATE
     Indication: ACUTE RESPIRATORY DISTRESS SYNDROME
     Dosage: 12 MG, 1X/DAY
     Route: 042
  11. PREDNISOLONE. [Suspect]
     Active Substance: PREDNISOLONE
     Dosage: 2 DOSES FOR ONE DAY
  12. BUDESONIDE. [Suspect]
     Active Substance: BUDESONIDE
     Indication: RESPIRATORY DISTRESS
  13. VARIVAX [Suspect]
     Active Substance: VARICELLA-ZOSTER VIRUS STRAIN OKA/MERCK LIVE ANTIGEN
     Dosage: UNK
  14. METHYLPREDNISOLONE SODIUM SUCCINATE. [Suspect]
     Active Substance: METHYLPREDNISOLONE SODIUM SUCCINATE
     Dosage: 6 MG ONCE A DAY FOR 2 D
     Route: 042
  15. METHYLPREDNISOLONE SODIUM SUCCINATE. [Suspect]
     Active Substance: METHYLPREDNISOLONE SODIUM SUCCINATE
     Dosage: TAPERED
     Route: 042
  16. PREDNISOLONE. [Suspect]
     Active Substance: PREDNISOLONE
     Indication: RESPIRATORY DISTRESS
     Dosage: 3.5 MG EVERY 12 HOURS FOR 2 D

REACTIONS (5)
  - Multiple organ dysfunction syndrome [Fatal]
  - Sepsis [Fatal]
  - Acute respiratory distress syndrome [Fatal]
  - Pneumonia viral [Unknown]
  - Rash vesicular [Unknown]
